FAERS Safety Report 8683164 (Version 2)
Quarter: 2013Q4

REPORT INFORMATION
  Report Type: Report from Study
  Country: FR (occurrence: BR)
  Receive Date: 20120726
  Receipt Date: 20131101
  Transmission Date: 20140711
  Serious: Yes (Other)
  Sender: FDA-Public Use
  Company Number: FR-MSD-1010FRA00070

PATIENT
  Sex: Male

DRUGS (6)
  1. RALTEGRAVIR POTASSIUM [Suspect]
     Indication: HIV INFECTION
     Dosage: 400 MG, BID
     Route: 048
     Dates: start: 20100623
  2. VIREAD [Suspect]
     Indication: HIV INFECTION
     Dosage: 300 MG, QD
     Route: 048
     Dates: start: 20100623
  3. EPIVIR [Suspect]
     Indication: HIV INFECTION
     Dosage: 300 MG, QD
     Route: 048
     Dates: start: 20100623
  4. RIFAMPIN [Suspect]
     Indication: TUBERCULOSIS
     Dosage: 600 MG, QD
     Route: 048
     Dates: start: 20100511
  5. ISONIAZID [Concomitant]
     Dosage: 400 MG, QD
     Route: 048
     Dates: start: 20100511
  6. FERROUS SULFATE [Concomitant]
     Indication: ANAEMIA PROPHYLAXIS
     Dosage: 40 MG, QD
     Route: 048
     Dates: start: 20100819

REACTIONS (1)
  - Neutropenia [Recovered/Resolved]
